FAERS Safety Report 7640947-6 (Version None)
Quarter: 2011Q3

REPORT INFORMATION
  Report Type: 
  Country: None (occurrence: None)
  Receive Date: 20110728
  Receipt Date: 20110722
  Transmission Date: 20111222
  Serious: Yes (Hospitalization)
  Sender: FDA-Public Use
  Company Number: US-JNJFOC-20110710115

PATIENT
  Age: 25 Year
  Sex: Male

DRUGS (1)
  1. SIMPONI [Suspect]
     Indication: RHEUMATOID ARTHRITIS
     Route: 058
     Dates: end: 20110101

REACTIONS (3)
  - RENAL FAILURE ACUTE [None]
  - GLOMERULONEPHRITIS [None]
  - VASCULITIS [None]
